FAERS Safety Report 23090741 (Version 1)
Quarter: 2023Q4

REPORT INFORMATION
  Report Type: Spontaneous
  Country: US (occurrence: US)
  Receive Date: 20231020
  Receipt Date: 20231020
  Transmission Date: 20240110
  Serious: Yes (Other)
  Sender: FDA-Public Use
  Company Number: US-SUN PHARMACEUTICAL INDUSTRIES LTD-2023R1-413261

PATIENT
  Age: 27 Year
  Sex: Female

DRUGS (1)
  1. PREDNISONE [Suspect]
     Active Substance: PREDNISONE
     Indication: Lymphadenopathy mediastinal
     Dosage: UNK, 5 DAYS
     Route: 065

REACTIONS (1)
  - Interstitial lung disease [Recovering/Resolving]
